FAERS Safety Report 8304035-8 (Version None)
Quarter: 2012Q2

REPORT INFORMATION
  Report Type: 
  Country: None (occurrence: None)
  Receive Date: 20120423
  Receipt Date: 20120410
  Transmission Date: 20120825
  Serious: Yes (Hospitalization, Other)
  Sender: FDA-Public Use
  Company Number: AU-CELGENEUS-008-50794-12012443

PATIENT

DRUGS (3)
  1. NEUPOGEN [Concomitant]
     Indication: PROPHYLAXIS
     Route: 065
  2. VIDAZA [Suspect]
     Route: 050
     Dates: start: 20101001, end: 20111025
  3. CIPROFLOXACIN [Concomitant]
     Indication: PROPHYLAXIS
     Route: 065

REACTIONS (1)
  - ORGANISING PNEUMONIA [None]
